FAERS Safety Report 18055908 (Version 1)
Quarter: 2020Q3

REPORT INFORMATION
  Report Type: Spontaneous
  Country: AU (occurrence: AU)
  Receive Date: 20200722
  Receipt Date: 20200722
  Transmission Date: 20201103
  Serious: Yes (Other)
  Sender: FDA-Public Use
  Company Number: AU-PFIZER INC-2020279089

PATIENT
  Age: 30 Year
  Sex: Male

DRUGS (1)
  1. XELJANZ [Suspect]
     Active Substance: TOFACITINIB CITRATE
     Dosage: 10 MG, 2X/DAY

REACTIONS (6)
  - Drug ineffective [Unknown]
  - Lethargy [Unknown]
  - C-reactive protein increased [Unknown]
  - Frequent bowel movements [Unknown]
  - Fatigue [Unknown]
  - Haematochezia [Unknown]
